FAERS Safety Report 8666446 (Version 3)
Quarter: 2014Q1

REPORT INFORMATION
  Report Type: Spontaneous
  Country: JP (occurrence: JP)
  Receive Date: 20120716
  Receipt Date: 20140203
  Transmission Date: 20141002
  Serious: Yes (Hospitalization)
  Sender: FDA-Public Use
  Company Number: JP-GLAXOSMITHKLINE-B0800912A

PATIENT
  Age: 61 Year
  Sex: Female

DRUGS (5)
  1. LAMICTAL [Suspect]
     Indication: BIPOLAR DISORDER
     Dosage: 25MG PER DAY
     Route: 048
     Dates: start: 20120221, end: 20120312
  2. LAMICTAL [Suspect]
     Indication: BIPOLAR DISORDER
     Dosage: 50MG PER DAY
     Route: 048
     Dates: start: 20120313, end: 20120326
  3. LAMICTAL [Suspect]
     Indication: BIPOLAR DISORDER
     Dosage: 100MG PER DAY
     Route: 048
     Dates: start: 20120327, end: 20120410
  4. LAMICTAL [Suspect]
     Indication: BIPOLAR DISORDER
     Dosage: 125MG PER DAY
     Route: 048
     Dates: start: 20120411, end: 20120417
  5. LAMICTAL [Suspect]
     Indication: BIPOLAR DISORDER
     Dosage: 150MG PER DAY
     Route: 048
     Dates: start: 20120418, end: 20120501

REACTIONS (38)
  - Stevens-Johnson syndrome [Recovering/Resolving]
  - Toxic epidermal necrolysis [Unknown]
  - Erythema multiforme [Unknown]
  - Epidermal necrosis [Unknown]
  - Stupor [Unknown]
  - Lip erosion [Unknown]
  - Oropharyngeal pain [Unknown]
  - Tongue disorder [Unknown]
  - Oral mucosal erythema [Unknown]
  - Aphthous stomatitis [Unknown]
  - Palmar erythema [Unknown]
  - Plantar erythema [Unknown]
  - Listless [Unknown]
  - Lip blister [Unknown]
  - Blister [Unknown]
  - Eye discharge [Unknown]
  - Oral mucosal eruption [Unknown]
  - Oral mucosa erosion [Unknown]
  - Pharyngeal erythema [Unknown]
  - Conjunctival hyperaemia [Unknown]
  - Pyrexia [Unknown]
  - Eczema [Unknown]
  - Dermatitis [Unknown]
  - Skin degenerative disorder [Unknown]
  - Depression [Unknown]
  - Lymphocytic infiltration [Unknown]
  - Mucosal erosion [Unknown]
  - Mucosal ulceration [Unknown]
  - Lip ulceration [Unknown]
  - Mouth ulceration [Unknown]
  - C-reactive protein increased [Unknown]
  - Neutrophil percentage increased [Unknown]
  - Lymphocyte stimulation test positive [Unknown]
  - Serum amyloid A protein increased [Unknown]
  - White blood cell count increased [Unknown]
  - Aspartate aminotransferase increased [Unknown]
  - Alanine aminotransferase increased [Unknown]
  - Gamma-glutamyltransferase increased [Unknown]
